FAERS Safety Report 16711138 (Version 1)
Quarter: 2019Q4

REPORT INFORMATION
  Report Type: Spontaneous
  Country: US (occurrence: US)
  Receive Date: 20190816
  Receipt Date: 20190816
  Transmission Date: 20200122
  Serious: Yes (Hospitalization)
  Sender: FDA-Public Use
  Company Number: None

PATIENT
  Sex: Female

DRUGS (15)
  1. LOSARTAN. [Concomitant]
     Active Substance: LOSARTAN
  2. MELOXICAM. [Concomitant]
     Active Substance: MELOXICAM
  3. VITAMIN D3 [Concomitant]
     Active Substance: CHOLECALCIFEROL
  4. PROLIA [Suspect]
     Active Substance: DENOSUMAB
     Indication: SENILE OSTEOPOROSIS
     Dosage: ?          OTHER FREQUENCY:EVERY 6 MONTHS;?
     Route: 058
     Dates: start: 20171205
  5. HYDROCODONE [Concomitant]
     Active Substance: HYDROCODONE
  6. FOLIC ACID. [Concomitant]
     Active Substance: FOLIC ACID
  7. FUROSEMIDE. [Concomitant]
     Active Substance: FUROSEMIDE
  8. VITAMIN D2 [Concomitant]
     Active Substance: ERGOCALCIFEROL
  9. LEVOTHYROXIN [Concomitant]
     Active Substance: LEVOTHYROXINE
  10. METHOTREXATE. [Concomitant]
     Active Substance: METHOTREXATE
  11. METOPROLOL. [Concomitant]
     Active Substance: METOPROLOL
  12. SIMVASTATIN. [Concomitant]
     Active Substance: SIMVASTATIN
  13. CYANOCOBALAM [Concomitant]
     Active Substance: CYANOCOBALAMIN
  14. FISH OIL [Concomitant]
     Active Substance: FISH OIL
  15. TRAMADOL. [Concomitant]
     Active Substance: TRAMADOL

REACTIONS (1)
  - Hospitalisation [None]
